FAERS Safety Report 9021911 (Version 1)
Quarter: 2013Q1

REPORT INFORMATION
  Report Type: Spontaneous
  Country: SE (occurrence: SE)
  Receive Date: 20130118
  Receipt Date: 20130118
  Transmission Date: 20140127
  Serious: Yes (Hospitalization)
  Sender: FDA-Public Use
  Company Number: SE-009507513-1301SWE007321

PATIENT
  Age: 89 Year
  Sex: Male

DRUGS (7)
  1. MIRTAZAPINE [Suspect]
     Dosage: UNK
     Dates: start: 201207, end: 201207
  2. OMEPRAZOLE [Concomitant]
  3. HERACILLIN [Concomitant]
  4. PANODIL [Concomitant]
  5. CITODON (HEXOBARBITAL) [Concomitant]
  6. OXASCAND [Concomitant]
  7. CILAXORAL [Concomitant]

REACTIONS (1)
  - Confusional state [Unknown]
